FAERS Safety Report 5599454-7 (Version None)
Quarter: 2007Q4

REPORT INFORMATION
  Report Type: 
  Country: None (occurrence: None)
  Receive Date: 20071226
  Receipt Date: 20071104
  Transmission Date: 20080405
  Serious: No
  Sender: FDA-Public Use
  Company Number: PHEH2007US14795

PATIENT

DRUGS (1)
  1. TYZEKA [Suspect]

REACTIONS (2)
  - DYSGEUSIA [None]
  - HYPOGEUSIA [None]
